FAERS Safety Report 18626445 (Version 3)
Quarter: 2021Q3

REPORT INFORMATION
  Report Type: Report from Study
  Country: None (occurrence: CA)
  Receive Date: 20201217
  Receipt Date: 20210908
  Transmission Date: 20211014
  Serious: Yes (Other)
  Sender: FDA-Public Use
  Company Number: CA-ABBVIE-20K-028-3695691-00

PATIENT
  Age: 64 Year
  Sex: Female

DRUGS (1)
  1. RINVOQ [Suspect]
     Active Substance: UPADACITINIB
     Indication: RHEUMATOID ARTHRITIS
     Route: 048
     Dates: start: 20200318

REACTIONS (22)
  - Eye disorder [Unknown]
  - Hypersensitivity [Unknown]
  - Eye symptom [Unknown]
  - Headache [Unknown]
  - Pain in extremity [Not Recovered/Not Resolved]
  - Eye infection [Unknown]
  - Fatigue [Unknown]
  - Muscle spasms [Unknown]
  - Pain in extremity [Unknown]
  - Back pain [Unknown]
  - Eye discharge [Unknown]
  - Foreign body sensation in eyes [Unknown]
  - Eye pain [Unknown]
  - Swelling face [Unknown]
  - Cataract [Unknown]
  - Impaired work ability [Unknown]
  - Eye infection [Unknown]
  - Cough [Unknown]
  - Peripheral swelling [Unknown]
  - Gait inability [Unknown]
  - Mass [Unknown]
  - Cataract [Unknown]

NARRATIVE: CASE EVENT DATE: 2020
